FAERS Safety Report 15353289 (Version 1)
Quarter: 2018Q3

REPORT INFORMATION
  Report Type: Spontaneous
  Country: US (occurrence: US)
  Receive Date: 20180905
  Receipt Date: 20180905
  Transmission Date: 20181010
  Serious: No
  Sender: FDA-Public Use
  Company Number: US-MYLANLABS-2018M1064887

PATIENT
  Sex: Female
  Weight: 60 kg

DRUGS (1)
  1. PROPRANOLOL HYDROCHLORIDE TABLETS, USP [Suspect]
     Active Substance: PROPRANOLOL HYDROCHLORIDE
     Indication: ARRHYTHMIA
     Dosage: 5 MG, BID
     Route: 048

REACTIONS (2)
  - Skin discolouration [Recovering/Resolving]
  - Wrong technique in product usage process [Not Recovered/Not Resolved]
